FAERS Safety Report 10775407 (Version 1)
Quarter: 2015Q1

REPORT INFORMATION
  Report Type: Spontaneous
  Country: FR (occurrence: None)
  Receive Date: 20150205
  Receipt Date: 20150205
  Transmission Date: 20150721
  Serious: Yes (Disabling, Other)
  Sender: FDA-Public Use
  Company Number: FR-H14001-15-00155

PATIENT
  Age: 62 Year
  Sex: Male
  Weight: 57 kg

DRUGS (12)
  1. CERUBIDIN [Suspect]
     Active Substance: DAUNORUBICIN
     Indication: ACUTE MYELOID LEUKAEMIA
     Dosage: 60 MG/M2, INTRAVENOUS (NOT OTHERWISE SPECIFIED)
     Route: 042
     Dates: start: 20100607, end: 20100608
  2. ALDACTONE [Concomitant]
     Active Substance: SPIRONOLACTONE
  3. LORAMIC (MICONAZOLE) [Concomitant]
     Active Substance: MICONAZOLE
  4. VANCOMYCIN [Concomitant]
     Active Substance: VANCOMYCIN
  5. MYLOTARG [Suspect]
     Active Substance: GEMTUZUMAB OZOGAMICIN
     Indication: ACUTE MYELOID LEUKAEMIA
     Route: 041
     Dates: start: 20100607, end: 20100607
  6. STILNOX (ZOLPIDEM TARTRATE) FILM-COATED TABLET [Concomitant]
     Active Substance: ZOLPIDEM TARTRATE
  7. DIFFU K (POTASSIUM CHLORIDE) (POTASSIUM CHLORIDE) [Concomitant]
     Active Substance: POTASSIUM CHLORIDE
  8. GAVISCON [Concomitant]
     Active Substance: ALUMINUM HYDROXIDE\MAGNESIUM CARBONATE
  9. LEXOMIL (BROMAZEPAM) [Concomitant]
     Active Substance: BROMAZEPAM
  10. LANSOYL )PARAFFIN, LIQUID) [Concomitant]
  11. CYTARABINE. [Suspect]
     Active Substance: CYTARABINE
     Indication: ACUTE MYELOID LEUKAEMIA
     Dosage: 2000 MG/M2, INTRAVENOUS (NOT OTHERWISE SPECIFIED)?
     Route: 042
     Dates: start: 20100607, end: 20100610
  12. OMEPRAZOLE. [Concomitant]
     Active Substance: OMEPRAZOLE

REACTIONS (1)
  - Thrombocytopenia [None]

NARRATIVE: CASE EVENT DATE: 20100722
